FAERS Safety Report 15326261 (Version 1)
Quarter: 2018Q3

REPORT INFORMATION
  Report Type: Spontaneous
  Country: IT (occurrence: IT)
  Receive Date: 20180828
  Receipt Date: 20180828
  Transmission Date: 20181010
  Serious: Yes (Life-Threatening)
  Sender: FDA-Public Use
  Company Number: IT-PFIZER INC-2018281110

PATIENT
  Age: 47 Year
  Sex: Female

DRUGS (1)
  1. NIVESTIM [Suspect]
     Active Substance: FILGRASTIM
     Indication: NEUTROPENIA
     Dosage: 30 MILLION IU, SINGLE
     Route: 058

REACTIONS (3)
  - Choking [Recovered/Resolved]
  - Laryngeal oedema [Recovered/Resolved]
  - Erythema [Recovered/Resolved]

NARRATIVE: CASE EVENT DATE: 20180614
